FAERS Safety Report 5139619-1 (Version None)
Quarter: 2006Q4

REPORT INFORMATION
  Report Type: 
  Country: None (occurrence: None)
  Receive Date: 20061024
  Receipt Date: 20061020
  Transmission Date: 20070319
  Serious: Yes (Hospitalization)
  Sender: FDA-Public Use
  Company Number: TCI2006A03234

PATIENT
  Age: 72 Year
  Sex: Male

DRUGS (3)
  1. LEUPROLIDE ACETATE [Suspect]
     Indication: PROSTATE CANCER
     Dosage: 3.75 MG (3.75 MG, 1 IN 28 D), SUBCUTANEOUS
     Route: 058
     Dates: start: 20050804, end: 20051003
  2. HONVAN (FOSFESTROL TETRASODIUM) (INJECTION) [Concomitant]
  3. CASODEX [Concomitant]

REACTIONS (1)
  - CRYPTOGENIC ORGANISING PNEUMONIA [None]
